FAERS Safety Report 8807605 (Version 1)
Quarter: 2012Q4

REPORT INFORMATION
  Report Type: 
  Country: VE (occurrence: VE)
  Receive Date: 20120925
  Receipt Date: 20120925
  Transmission Date: 20130627
  Serious: Yes (Death)
  Sender: FDA-Public Use
  Company Number: VE-PFIZER INC-2012236319

PATIENT
  Age: 91 Year
  Sex: Female

DRUGS (3)
  1. LIPITOR [Suspect]
     Dosage: 40 mg, once daily
     Route: 048
  2. ZOLOFT [Concomitant]
     Dosage: 50 mg, UNK
     Route: 048
  3. LYRICA [Concomitant]
     Dosage: 150 mg, UNK
     Route: 048

REACTIONS (1)
  - Death [Fatal]
